FAERS Safety Report 23133409 (Version 1)
Quarter: 2023Q4

REPORT INFORMATION
  Report Type: Report from Study
  Country: ES (occurrence: ES)
  Receive Date: 20231101
  Receipt Date: 20231101
  Transmission Date: 20240109
  Serious: Yes (Life-Threatening, Other)
  Sender: FDA-Public Use
  Company Number: ES-GLAXOSMITHKLINE-ES2023GSK146297

PATIENT

DRUGS (3)
  1. MOMELOTINIB [Suspect]
     Active Substance: MOMELOTINIB
     Indication: Primary myelofibrosis
  2. LORACEPAM [Concomitant]
     Indication: Depression
     Dosage: 1 MG, BID
     Route: 048
     Dates: start: 20230628
  3. AMITRIPTYLINE HYDROCHLORIDE [Concomitant]
     Active Substance: AMITRIPTYLINE HYDROCHLORIDE
     Indication: Depression
     Dosage: 50 MG
     Route: 048
     Dates: start: 20230330

REACTIONS (1)
  - Thrombocytopenia [Recovering/Resolving]

NARRATIVE: CASE EVENT DATE: 20231018
